FAERS Safety Report 6794841-3 (Version None)
Quarter: 2010Q2

REPORT INFORMATION
  Report Type: 
  Country: None (occurrence: None)
  Receive Date: 20100624
  Receipt Date: 20100624
  Transmission Date: 20101027
  Serious: Yes (Other)
  Sender: FDA-Public Use
  Company Number: None

PATIENT
  Sex: Female
  Weight: 108.8633 kg

DRUGS (1)
  1. ERYTHROMYCIN [Suspect]
     Indication: EYE INFECTION
     Dosage: APPROX. 1 CM LONG TWICE DAILY

REACTIONS (1)
  - EYE PAIN [None]
